FAERS Safety Report 7130359-6 (Version None)
Quarter: 2010Q4

REPORT INFORMATION
  Report Type: 
  Country: None (occurrence: None)
  Receive Date: 20101201
  Receipt Date: 20101124
  Transmission Date: 20110411
  Serious: Yes (Life-Threatening, Hospitalization, Other)
  Sender: FDA-Public Use
  Company Number: PHHY2010DE80435

PATIENT
  Age: 77 Year
  Sex: Female
  Weight: 89 kg

DRUGS (2)
  1. EXFORGE HCT [Suspect]
     Dosage: ONE TABLET DAILY
     Route: 048
     Dates: start: 20100825, end: 20100929
  2. XENETIX [Suspect]
     Indication: ARTERIOGRAM CORONARY
     Dosage: 100 ML (76780 MG)
     Route: 042
     Dates: start: 20100924

REACTIONS (5)
  - CONDITION AGGRAVATED [None]
  - CORONARY ARTERY DISEASE [None]
  - DIALYSIS [None]
  - DYSPNOEA EXERTIONAL [None]
  - RENAL FAILURE ACUTE [None]
